FAERS Safety Report 16862144 (Version 1)
Quarter: 2019Q4

REPORT INFORMATION
  Report Type: Spontaneous
  Country: US (occurrence: US)
  Receive Date: 20190927
  Receipt Date: 20190927
  Transmission Date: 20200122
  Serious: No
  Sender: FDA-Public Use
  Company Number: None

PATIENT
  Age: 85 Year
  Sex: Male
  Weight: 66.36 kg

DRUGS (2)
  1. MELPHALAN. [Suspect]
     Active Substance: MELPHALAN
     Indication: RENAL CANCER
     Dosage: ?          OTHER FREQUENCY:X 4D IN 42D CYCLE;?
     Route: 048
     Dates: start: 20181213
  2. MELPHALAN. [Suspect]
     Active Substance: MELPHALAN
     Indication: PLASMA CELL MYELOMA
     Dosage: ?          OTHER FREQUENCY:X 4D IN 42D CYCLE;?
     Route: 048
     Dates: start: 20181213

REACTIONS (1)
  - Laboratory test abnormal [None]

NARRATIVE: CASE EVENT DATE: 20190927
